FAERS Safety Report 12162030 (Version 1)
Quarter: 2016Q1

REPORT INFORMATION
  Report Type: Spontaneous
  Country: US (occurrence: None)
  Receive Date: 20160307
  Receipt Date: 20160307
  Transmission Date: 20160526
  Serious: Yes (Disabling, Other)
  Sender: FDA-Public Use
  Company Number: None

PATIENT
  Age: 27 Year
  Sex: Female
  Weight: 68.04 kg

DRUGS (2)
  1. FORTIFY PROBIOTIC [Concomitant]
  2. CLINDAMYCIN [Suspect]
     Active Substance: CLINDAMYCIN\CLINDAMYCIN PHOSPHATE
     Indication: ORAL CANDIDIASIS
     Dosage: 300 MG/ 6 HRS 6 TIMES DAILY TAKEN BY MOUTH
     Route: 048
     Dates: start: 20160221, end: 20160225

REACTIONS (16)
  - Proctalgia [None]
  - Frequent bowel movements [None]
  - Rhinalgia [None]
  - Rectal haemorrhage [None]
  - Gallbladder pain [None]
  - Oropharyngeal pain [None]
  - Dizziness [None]
  - Renal pain [None]
  - Viral infection [None]
  - Gastrointestinal pain [None]
  - Haemorrhoids [None]
  - Headache [None]
  - Nausea [None]
  - Flatulence [None]
  - Eye pain [None]
  - Product quality issue [None]

NARRATIVE: CASE EVENT DATE: 20160225
